FAERS Safety Report 19483690 (Version 1)
Quarter: 2021Q3

REPORT INFORMATION
  Report Type: Other
  Country: US (occurrence: US)
  Receive Date: 20210701
  Receipt Date: 20210701
  Transmission Date: 20211014
  Serious: No
  Sender: FDA-Public Use
  Company Number: US-ROCHE-2729168

PATIENT
  Age: 38 Year
  Sex: Male

DRUGS (6)
  1. CLONAZEPAM. [Suspect]
     Active Substance: CLONAZEPAM
     Indication: TOURETTE^S DISORDER
     Route: 065
  2. AMANTADINE. [Concomitant]
     Active Substance: AMANTADINE HYDROCHLORIDE
  3. GUANFACINE. [Concomitant]
     Active Substance: GUANFACINE
     Dosage: 1 MG EVERY MORNING AND 2 MG EVERY EVENING
  4. OLANZAPINE. [Concomitant]
     Active Substance: OLANZAPINE
     Dosage: EVERY NIGHT
  5. PAROXETINE. [Concomitant]
     Active Substance: PAROXETINE
     Dosage: 20 MG EVERY MORNING AND 60 MG EVERY EVENING
  6. ATORVASTATIN [Concomitant]
     Active Substance: ATORVASTATIN
     Dosage: EVERY NIGHT

REACTIONS (1)
  - Somnolence [Unknown]
